FAERS Safety Report 20776935 (Version 2)
Quarter: 2022Q3

REPORT INFORMATION
  Report Type: Spontaneous
  Country: JP (occurrence: JP)
  Receive Date: 20220502
  Receipt Date: 20220908
  Transmission Date: 20221027
  Serious: Yes (Other)
  Sender: FDA-Public Use
  Company Number: JP-BEH-2022144795

PATIENT
  Sex: Female
  Weight: 60 kg

DRUGS (2)
  1. HIZENTRA [Suspect]
     Active Substance: HUMAN IMMUNOGLOBULIN G
     Indication: Chronic inflammatory demyelinating polyradiculoneuropathy
     Dosage: 120 MILLILITER, SINGLE
     Route: 058
     Dates: start: 20191030, end: 20191030
  2. HIZENTRA [Suspect]
     Active Substance: HUMAN IMMUNOGLOBULIN G
     Dosage: 120 MILLILITER, QW
     Route: 058
     Dates: start: 20191117

REACTIONS (2)
  - Injection site ulcer [Recovered/Resolved]
  - Injection site ulcer [Recovered/Resolved]

NARRATIVE: CASE EVENT DATE: 20210401
